FAERS Safety Report 17206401 (Version 2)
Quarter: 2019Q4

REPORT INFORMATION
  Report Type: Spontaneous
  Country: US (occurrence: US)
  Receive Date: 20191227
  Receipt Date: 20191230
  Transmission Date: 20200122
  Serious: Yes (Hospitalization)
  Sender: FDA-Public Use
  Company Number: US-SA-2019SA358617

PATIENT
  Age: 91 Year
  Sex: Male

DRUGS (12)
  1. PANTOPRAZOLE [Concomitant]
     Active Substance: PANTOPRAZOLE
  2. DICLOFENAC [Concomitant]
     Active Substance: DICLOFENAC
  3. OXYBUTYNIN. [Concomitant]
     Active Substance: OXYBUTYNIN CHLORIDE
  4. ANUCORT-HC [Concomitant]
     Active Substance: HYDROCORTISONE ACETATE
  5. TRIAMCINOLON [TRIAMCINOLONE] [Concomitant]
  6. KETOCONAZOLE. [Concomitant]
     Active Substance: KETOCONAZOLE
  7. DUPIXENT [Suspect]
     Active Substance: DUPILUMAB
     Indication: NEURODERMATITIS
     Dosage: 150 MG/ML, QOW/300MG/2ML
     Route: 058
     Dates: start: 20190426
  8. OMEPRAZOLE. [Concomitant]
     Active Substance: OMEPRAZOLE
  9. AMOXICILLIN. [Concomitant]
     Active Substance: AMOXICILLIN
  10. CIPRO [Concomitant]
     Active Substance: CIPROFLOXACIN HYDROCHLORIDE
  11. TRAMADOL. [Concomitant]
     Active Substance: TRAMADOL
  12. AZELASTINE. [Concomitant]
     Active Substance: AZELASTINE HYDROCHLORIDE

REACTIONS (1)
  - Gout [Recovered/Resolved]

NARRATIVE: CASE EVENT DATE: 20191202
